FAERS Safety Report 4325483-7 (Version None)
Quarter: 2004Q1

REPORT INFORMATION
  Report Type: 
  Country: None (occurrence: None)
  Receive Date: 20040324
  Receipt Date: 20040304
  Transmission Date: 20041129
  Serious: Yes (Hospitalization)
  Sender: FDA-Public Use
  Company Number: GBS040314562

PATIENT
  Age: 34 Year
  Sex: Female
  Weight: 60 kg

DRUGS (1)
  1. ZYPREXA [Suspect]
     Dosage: 12.5 MG
     Dates: start: 20030101, end: 20040301

REACTIONS (2)
  - NEUTROPENIA [None]
  - PANCYTOPENIA [None]
